FAERS Safety Report 21087781 (Version 2)
Quarter: 2022Q3

REPORT INFORMATION
  Report Type: Spontaneous
  Country: None (occurrence: JP)
  Receive Date: 20220715
  Receipt Date: 20220920
  Transmission Date: 20221027
  Serious: Yes (Other)
  Sender: FDA-Public Use
  Company Number: JP-Acacia Pharma Limited-2130910

PATIENT
  Age: 82 Year
  Sex: Male
  Weight: 55 kg

DRUGS (5)
  1. BYFAVO [Suspect]
     Active Substance: REMIMAZOLAM BESYLATE
     Indication: General anaesthesia
     Route: 042
  2. ULTIVA [Suspect]
     Active Substance: REMIFENTANIL HYDROCHLORIDE
     Route: 042
  3. ROCURONIUM BROMIDE [Concomitant]
     Active Substance: ROCURONIUM BROMIDE
     Route: 042
  4. ACETAMINOPHEN [Concomitant]
     Active Substance: ACETAMINOPHEN
     Route: 042
  5. FENTANYL CITRATE [Suspect]
     Active Substance: FENTANYL CITRATE
     Route: 042

REACTIONS (5)
  - Cardiac failure acute [Recovering/Resolving]
  - Oxygen saturation decreased [Recovering/Resolving]
  - Low lung compliance [Recovering/Resolving]
  - Blood pressure decreased [Recovering/Resolving]
  - Blood pressure decreased [Recovering/Resolving]

NARRATIVE: CASE EVENT DATE: 20220506
